FAERS Safety Report 6033157-X (Version None)
Quarter: 2009Q1

REPORT INFORMATION
  Report Type: 
  Country: None (occurrence: None)
  Receive Date: 20090105
  Receipt Date: 20080125
  Transmission Date: 20090719
  Serious: Yes (Other)
  Sender: FDA-Public Use
  Company Number: US-000167

PATIENT
  Age: 67 Year
  Sex: Male

DRUGS (12)
  1. MULTIHANCE [Suspect]
     Indication: NUCLEAR MAGNETIC RESONANCE IMAGING
     Dosage: 20ML Q2D INTRAVENOUS (NOT OTHERWISE SPECIFIED)
     Route: 042
     Dates: start: 20071210, end: 20071210
  2. AMLODIPINE [Concomitant]
  3. METOPOLOL (METOPROLOL) [Concomitant]
  4. FAMOTIDINE [Concomitant]
  5. SPIRIVA [Concomitant]
  6. ADVAIR (FLUTIASONE PROPICASONE; SALMETEROL XINAFOATE) [Concomitant]
  7. NASONEX [Concomitant]
  8. PLAVIX [Concomitant]
  9. FLOMAX (MORNIFLUMATE) [Concomitant]
  10. VYTORIN [Concomitant]
  11. ASPERIN [Concomitant]
  12. BENICAR [Concomitant]

REACTIONS (1)
  - RESPIRATORY DISTRESS [None]
